FAERS Safety Report 9313094 (Version 1)
Quarter: 2013Q2

REPORT INFORMATION
  Report Type: Spontaneous
  Country: US (occurrence: US)
  Receive Date: 20130528
  Receipt Date: 20130528
  Transmission Date: 20140414
  Serious: No
  Sender: FDA-Public Use
  Company Number: US-ABBOTT-13P-163-1071521-00

PATIENT
  Age: 74 Year
  Sex: Male
  Weight: 95.34 kg

DRUGS (11)
  1. ANDROGEL [Suspect]
     Indication: BLOOD TESTOSTERONE DECREASED
     Dates: start: 2012
  2. SIMVASTATIN [Suspect]
     Indication: BLOOD CHOLESTEROL INCREASED
     Dates: end: 201302
  3. GLYBURIDE [Concomitant]
     Indication: DIABETES MELLITUS
  4. METFORMIN [Concomitant]
     Indication: DIABETES MELLITUS
  5. VICTOZA [Concomitant]
     Indication: DIABETES MELLITUS
  6. ACTOS [Concomitant]
     Indication: DIABETES MELLITUS
  7. HUMULIN [Concomitant]
     Indication: DIABETES MELLITUS
  8. DIOVAN [Concomitant]
     Indication: HYPERTENSION
  9. AMLODIPINE [Concomitant]
     Indication: HYPERTENSION
  10. LISINOPRIL [Concomitant]
     Indication: HYPERTENSION
  11. OMEPRAZOLE [Concomitant]
     Indication: GASTROOESOPHAGEAL REFLUX DISEASE

REACTIONS (4)
  - Myalgia [Not Recovered/Not Resolved]
  - Gait disturbance [Not Recovered/Not Resolved]
  - Blood creatine phosphokinase increased [Not Recovered/Not Resolved]
  - Pain [Not Recovered/Not Resolved]
